FAERS Safety Report 15507774 (Version 2)
Quarter: 2018Q4

REPORT INFORMATION
  Report Type: Spontaneous
  Country: PL (occurrence: PL)
  Receive Date: 20181016
  Receipt Date: 20181113
  Transmission Date: 20190205
  Serious: Yes (Hospitalization, Other)
  Sender: FDA-Public Use
  Company Number: PL-SHIRE-PL201838406

PATIENT

DRUGS (2)
  1. HYQVIA [Suspect]
     Active Substance: HUMAN IMMUNOGLOBULIN G\HYALURONIDASE RECOMBINANT HUMAN
     Indication: SECONDARY IMMUNODEFICIENCY
     Dosage: 25 G, UNK, HYQ 20 G LE16T007AM
     Route: 065
     Dates: start: 20180910
  2. HYQVIA [Suspect]
     Active Substance: HUMAN IMMUNOGLOBULIN G\HYALURONIDASE RECOMBINANT HUMAN
     Dosage: 25 G, UNK, HYQ 5 G LE16S283AK
     Route: 065
     Dates: start: 20180910

REACTIONS (4)
  - Meningitis [Unknown]
  - Abdominal distension [Unknown]
  - Infusion site swelling [Unknown]
  - Injection site mass [Unknown]

NARRATIVE: CASE EVENT DATE: 20180910
